FAERS Safety Report 7671730-3 (Version None)
Quarter: 2011Q3

REPORT INFORMATION
  Report Type: 
  Country: None (occurrence: None)
  Receive Date: 20110727
  Receipt Date: 20110713
  Transmission Date: 20111222
  Serious: Yes (Death)
  Sender: FDA-Public Use
  Company Number: 2011PROUSA00474

PATIENT
  Age: 64 Year
  Sex: Male
  Weight: 73 kg

DRUGS (5)
  1. PROVENGE [Suspect]
     Indication: PROSTATE CANCER METASTATIC
     Dosage: 250 ML, SINGLE, INTRAVENOUS; 250ML, SINGLE, INTRAVENOUS; 250ML, SINGLE, INTRAVENOUS
     Route: 042
     Dates: start: 20101122, end: 20101122
  2. PROVENGE [Suspect]
     Indication: PROSTATE CANCER METASTATIC
     Dosage: 250 ML, SINGLE, INTRAVENOUS; 250ML, SINGLE, INTRAVENOUS; 250ML, SINGLE, INTRAVENOUS
     Route: 042
     Dates: start: 20101213, end: 20101213
  3. PROVENGE [Suspect]
     Indication: PROSTATE CANCER METASTATIC
     Dosage: 250 ML, SINGLE, INTRAVENOUS; 250ML, SINGLE, INTRAVENOUS; 250ML, SINGLE, INTRAVENOUS
     Route: 042
     Dates: start: 20110106, end: 20110106
  4. PROVENGE [Suspect]
  5. PROVENGE [Suspect]

REACTIONS (1)
  - DEATH [None]
